FAERS Safety Report 14968591 (Version 2)
Quarter: 2019Q4

REPORT INFORMATION
  Report Type: Spontaneous
  Country: US (occurrence: US)
  Receive Date: 20180604
  Receipt Date: 20191108
  Transmission Date: 20200122
  Serious: Yes (Other)
  Sender: FDA-Public Use
  Company Number: US-SA-2017SA260925

PATIENT
  Age: 47 Year
  Sex: Female
  Weight: 89.81 kg

DRUGS (6)
  1. TAXOTERE [Suspect]
     Active Substance: DOCETAXEL
     Indication: BREAST CANCER FEMALE
     Dosage: 10 MG/ML, Q3W
     Route: 042
     Dates: start: 20120117, end: 20120117
  2. NEOSAR [Concomitant]
     Active Substance: CYCLOPHOSPHAMIDE
     Indication: BREAST CANCER FEMALE
     Dosage: UNK, UNK
     Route: 065
  3. TAXOTERE [Suspect]
     Active Substance: DOCETAXEL
     Dosage: 10 MG/ML, Q3W
     Route: 042
     Dates: start: 20120228, end: 20120228
  4. TAXOTERE [Suspect]
     Active Substance: DOCETAXEL
     Dosage: 10 MG/ML, Q3W
     Route: 042
     Dates: start: 20120320, end: 20120320
  5. TAXOTERE [Suspect]
     Active Substance: DOCETAXEL
     Dosage: 20 MG/ML, Q3W
     Route: 042
     Dates: start: 20120410, end: 20120410
  6. TAXOTERE [Suspect]
     Active Substance: DOCETAXEL
     Dosage: 10 MG/ML, Q3W
     Route: 042
     Dates: start: 20120207, end: 20120207

REACTIONS (1)
  - Alopecia [Recovering/Resolving]

NARRATIVE: CASE EVENT DATE: 201210
